FAERS Safety Report 9603178 (Version 1)
Quarter: 2013Q4

REPORT INFORMATION
  Report Type: Spontaneous
  Country: US (occurrence: US)
  Receive Date: 20131007
  Receipt Date: 20131007
  Transmission Date: 20140711
  Serious: Yes (Hospitalization)
  Sender: FDA-Public Use
  Company Number: US-ROCHE-1284382

PATIENT
  Sex: Female

DRUGS (1)
  1. XELODA [Suspect]
     Indication: PRODUCT USED FOR UNKNOWN INDICATION
     Route: 065
     Dates: start: 201309, end: 201309

REACTIONS (4)
  - Paralysis [Recovered/Resolved]
  - Aphasia [Recovered/Resolved]
  - Dysphagia [Recovered/Resolved]
  - Leukoencephalopathy [Recovered/Resolved]
